FAERS Safety Report 9800739 (Version 2)
Quarter: 2014Q1

REPORT INFORMATION
  Report Type: Spontaneous
  Country: US (occurrence: US)
  Receive Date: 20140107
  Receipt Date: 20140131
  Transmission Date: 20141002
  Serious: No
  Sender: FDA-Public Use
  Company Number: US-PFIZER INC-2014003316

PATIENT
  Age: 77 Year
  Sex: Female
  Weight: 56.69 kg

DRUGS (8)
  1. XELJANZ [Suspect]
     Indication: RHEUMATOID ARTHRITIS
     Dosage: 5 MG, 2X/DAY
     Dates: start: 2013
  2. PREDNISONE [Concomitant]
     Dosage: 5 MG, 1X/DAY
  3. DIGOXIN [Concomitant]
     Dosage: 0.125 MG, 1X/DAY
  4. BABY ASPIRIN [Concomitant]
     Dosage: 81 MG, 1X/DAY
  5. CELEBREX [Concomitant]
     Dosage: 200 MG, 1X/DAY
  6. GABAPENTIN [Concomitant]
     Dosage: 300 MG, 2X/DAY
  7. COUMADINE [Concomitant]
     Dosage: 4 MG, 1X/DAY
  8. SIMVASTATIN [Concomitant]
     Dosage: 40 MG, 1X/DAY

REACTIONS (2)
  - Gingival pain [Unknown]
  - Tooth disorder [Unknown]
